FAERS Safety Report 10885037 (Version 1)
Quarter: 2015Q1

REPORT INFORMATION
  Report Type: Spontaneous
  Country: US (occurrence: US)
  Receive Date: 20150304
  Receipt Date: 20150304
  Transmission Date: 20150721
  Serious: No
  Sender: FDA-Public Use
  Company Number: US-TEVA-476951USA

PATIENT
  Age: 68 Year
  Sex: Female

DRUGS (1)
  1. CETIRIZINE W/PSEUDOEPHEDRINE [Suspect]
     Active Substance: CETIRIZINE HYDROCHLORIDE\PSEUDOEPHEDRINE HYDROCHLORIDE
     Indication: NASAL CONGESTION
     Dosage: 1 DOSAGE FORMS DAILY; 120 MG/5 MG AS NEEDED
     Route: 048
     Dates: start: 201404

REACTIONS (2)
  - Drug administered to patient of inappropriate age [Unknown]
  - Malaise [Not Recovered/Not Resolved]

NARRATIVE: CASE EVENT DATE: 201404
